FAERS Safety Report 8200120-X (Version None)
Quarter: 2012Q1

REPORT INFORMATION
  Report Type: 
  Country: None (occurrence: None)
  Receive Date: 20120306
  Receipt Date: 20120223
  Transmission Date: 20120608
  Serious: Yes (Hospitalization, Other)
  Sender: FDA-Public Use
  Company Number: 2012SP010349

PATIENT
  Sex: Female

DRUGS (3)
  1. VICTRELIS [Suspect]
     Indication: HEPATITIS C
     Dates: start: 20120217
  2. RIBAVIRIN [Suspect]
     Indication: HEPATITIS C
     Dates: start: 20120123
  3. PEGASYS [Suspect]
     Indication: HEPATITIS C
     Dates: start: 20120123

REACTIONS (4)
  - FALL [None]
  - POLYDIPSIA [None]
  - BLOOD SODIUM DECREASED [None]
  - HEAD INJURY [None]
